FAERS Safety Report 4769843-9 (Version None)
Quarter: 2005Q3

REPORT INFORMATION
  Report Type: 
  Country: None (occurrence: None)
  Receive Date: 20050912
  Receipt Date: 20050722
  Transmission Date: 20060218
  Serious: No
  Sender: FDA-Public Use
  Company Number: 2005-01559

PATIENT
  Age: 78 Year
  Sex: Female
  Weight: 59.9 kg

DRUGS (16)
  1. VELCADE [Suspect]
     Indication: MULTIPLE MYELOMA
     Dosage: 2.00 MG INTRAVENOUS
     Route: 042
     Dates: start: 20041220, end: 20050501
  2. VELCADE [Suspect]
     Dosage: 1 .10 MG INTRAVENOUS
     Route: 042
     Dates: start: 20050531, end: 20050718
  3. INSULIN [Concomitant]
  4. FUROSEMIDE [Concomitant]
  5. AVALIDE [Concomitant]
  6. TIMOLOL MALEATE [Concomitant]
  7. ATENOLOL [Concomitant]
  8. FOSAMAX [Concomitant]
  9. NORVASC [Concomitant]
  10. CALCIUM WITH VITAMIN D(ERGOCALCIFEROL, CALCIUM SODIUM LACTATE, CALCIUM [Concomitant]
  11. IRON (IRON) [Concomitant]
  12. ASPIRIN [Concomitant]
  13. PROCRIT [Concomitant]
  14. AREDIA (PAMIDRINATE DISODIUM) [Concomitant]
  15. VITAMIN B12 [Concomitant]
  16. NEUPOGEN [Concomitant]

REACTIONS (1)
  - PLATELET COUNT DECREASED [None]
